FAERS Safety Report 8477641-8 (Version None)
Quarter: 2012Q2

REPORT INFORMATION
  Report Type: 
  Country: None (occurrence: None)
  Receive Date: 20120629
  Receipt Date: 20120621
  Transmission Date: 20120825
  Serious: Yes (Hospitalization)
  Sender: FDA-Public Use
  Company Number: FR-SANOFI-AVENTIS-2012SA044395

PATIENT
  Age: 67 Year
  Sex: Male

DRUGS (14)
  1. KARDEGIC [Concomitant]
     Route: 048
  2. BACTRIM [Concomitant]
     Dosage: DOSE:02 UNIT(S)
  3. CELLCEPT [Concomitant]
     Route: 048
  4. NEXIUM [Concomitant]
     Route: 048
  5. POTASSIUM CHLORIDE [Concomitant]
     Route: 048
  6. ARANESP [Concomitant]
     Dosage: EVERY 15 DAYS
     Route: 048
  7. UMULINE [Concomitant]
     Route: 058
  8. NOVORAPID [Concomitant]
     Route: 058
  9. PENTOXIFYLLINE [Concomitant]
     Route: 048
  10. TACROLIMUS [Suspect]
     Route: 048
     Dates: start: 20120301
  11. SOLU-MEDROL [Concomitant]
     Route: 048
  12. ZOLPIDEM TARTRATE [Concomitant]
     Route: 048
  13. LASIX [Suspect]
     Route: 048
     Dates: end: 20120529
  14. ESIDRIX [Suspect]
     Route: 048
     Dates: end: 20120529

REACTIONS (3)
  - BLOOD CREATININE INCREASED [None]
  - RENAL TUBULAR NECROSIS [None]
  - HYPOKALAEMIA [None]
